FAERS Safety Report 24865235 (Version 1)
Quarter: 2025Q1

REPORT INFORMATION
  Report Type: Spontaneous
  Country: US (occurrence: US)
  Receive Date: 20250121
  Receipt Date: 20250121
  Transmission Date: 20250409
  Serious: Yes (Other)
  Sender: MERCK
  Company Number: US-009507513-2501USA004483

PATIENT
  Sex: Female

DRUGS (10)
  1. WINREVAIR [Suspect]
     Active Substance: SOTATERCEPT-CSRK
     Indication: Pulmonary hypertension
     Dosage: 45MG/0.8/EVERY 21 DAYS; ROUTE: INJECTION
     Dates: start: 20240824
  2. DEXLANSOPRAZOLE [Concomitant]
     Active Substance: DEXLANSOPRAZOLE
     Dosage: 30 MILLIGRAM, QD
  3. SIMVASTATIN [Concomitant]
     Active Substance: SIMVASTATIN
  4. ADCIRCA [Concomitant]
     Active Substance: TADALAFIL
  5. LASIKAL [Concomitant]
     Dosage: 20 MILLIGRAM, QD
  6. ATENOLOL [Concomitant]
     Active Substance: ATENOLOL
  7. METFORMIN [Concomitant]
     Active Substance: METFORMIN HYDROCHLORIDE
     Dosage: 500 MILLIGRAM, QD
  8. OPSUMIT [Concomitant]
     Active Substance: MACITENTAN
     Dosage: 10 MILLIGRAM, QD
  9. REPAGLINIDE [Concomitant]
     Active Substance: REPAGLINIDE
     Dosage: 8/10MG DAILY
  10. RECLAST [Concomitant]
     Active Substance: ZOLEDRONIC ACID
     Route: 042

REACTIONS (4)
  - Diabetes mellitus inadequate control [Not Recovered/Not Resolved]
  - Epistaxis [Not Recovered/Not Resolved]
  - Headache [Not Recovered/Not Resolved]
  - Dizziness [Not Recovered/Not Resolved]

NARRATIVE: CASE EVENT DATE: 20240101
